FAERS Safety Report 9286564 (Version 1)
Quarter: 2012Q4

REPORT INFORMATION
  Report Type: Spontaneous
  Country: US (occurrence: None)
  Receive Date: 20120911
  Receipt Date: 20120911
  Transmission Date: 20130627
  Serious: Yes (Other)
  Sender: FDA-Public Use
  Company Number: ABR_00375_2012

PATIENT
  Sex: Male
  Weight: 111.13 kg

DRUGS (19)
  1. BIDIL [Suspect]
     Indication: CARDIAC FAILURE CONGESTIVE
     Dates: start: 201101
  2. BIDIL [Suspect]
     Indication: CARDIAC FAILURE CONGESTIVE
  3. BIDIL [Suspect]
     Indication: CARDIAC FAILURE CONGESTIVE
  4. BIDIL [Suspect]
     Indication: CARDIAC FAILURE CONGESTIVE
     Dates: end: 2011
  5. COREG [Suspect]
     Indication: CARDIAC FAILURE CONGESTIVE
     Dates: start: 2011
  6. NORVASC [Suspect]
     Indication: HYPERTENSION
     Dates: start: 201111
  7. NORVASC [Suspect]
     Indication: HYPERTENSION
  8. NORVASC [Suspect]
     Indication: HYPERTENSION
  9. NORVASC [Suspect]
     Indication: HYPERTENSION
  10. WARFARIN [Concomitant]
  11. FLUTICASONE PROPIONATE [Concomitant]
  12. ADVAIR [Concomitant]
  13. ALBUTEROL [Concomitant]
  14. COLCRYS [Concomitant]
  15. METOPROLOL [Concomitant]
  16. SPIRONOLACTONE [Concomitant]
  17. FAMOTIDINE [Concomitant]
  18. AMIODARONE [Concomitant]
  19. POTASSIUM [Concomitant]

REACTIONS (18)
  - Dizziness [None]
  - Headache [None]
  - Vertigo [None]
  - Tinnitus [None]
  - Sinus congestion [None]
  - Nervousness [None]
  - Gout [None]
  - Blood pressure increased [None]
  - Middle insomnia [None]
  - Tremor [None]
  - Blood cholesterol increased [None]
  - Photophobia [None]
  - Feeling abnormal [None]
  - Feeling hot [None]
  - Memory impairment [None]
  - Drug dose omission [None]
  - Decreased activity [None]
  - Blood pressure decreased [None]
